FAERS Safety Report 7112488-6 (Version None)
Quarter: 2010Q4

REPORT INFORMATION
  Report Type: 
  Country: None (occurrence: None)
  Receive Date: 20101119
  Receipt Date: 20101109
  Transmission Date: 20110411
  Serious: Yes (Hospitalization, Other)
  Sender: FDA-Public Use
  Company Number: BR-SANOFI-AVENTIS-2010SA068558

PATIENT
  Sex: Female

DRUGS (2)
  1. XATRAL [Suspect]
     Route: 065
     Dates: start: 20100201
  2. XATRAL [Suspect]
     Route: 065
     Dates: start: 20100323

REACTIONS (2)
  - FALL [None]
  - OFF LABEL USE [None]
